FAERS Safety Report 8268284-X (Version None)
Quarter: 2012Q2

REPORT INFORMATION
  Report Type: 
  Country: None (occurrence: None)
  Receive Date: 20120409
  Receipt Date: 20120402
  Transmission Date: 20120825
  Serious: Yes (Hospitalization)
  Sender: FDA-Public Use
  Company Number: PHHO2010US11433

PATIENT
  Sex: Male

DRUGS (32)
  1. ASPIRIN [Concomitant]
     Dosage: UNK
     Dates: start: 20110806
  2. DOCUSATE [Concomitant]
     Dosage: UNK
     Dates: start: 20110806
  3. ALPRAZOLAM [Concomitant]
     Dosage: UNK
     Dates: start: 20120203
  4. NIZORAL [Concomitant]
     Dosage: UNK
     Dates: start: 20070223
  5. LIPITOR [Concomitant]
  6. THYROID TAB [Concomitant]
     Dosage: UNK
     Dates: start: 20110806
  7. METOPROLOL TARTRATE [Concomitant]
     Dosage: UNK
     Dates: start: 20111022
  8. PRAMOSONE [Concomitant]
     Dosage: UNK
     Dates: start: 20090811
  9. AMLODIPINE [Concomitant]
  10. PHENERGAN HCL [Concomitant]
  11. ADVAIR DISKUS 100/50 [Concomitant]
     Dosage: UNK
     Dates: start: 20110806
  12. MYCOPHENOLATE MOFETIL (CELLCEPT) [Suspect]
     Indication: RENAL TRANSPLANT
     Dosage: UNK
     Route: 048
     Dates: start: 20100326
  13. DIFLUCAN [Concomitant]
  14. ENALAPRIL MALEATE [Concomitant]
  15. MELATONIN [Concomitant]
  16. COUMADIN [Concomitant]
     Dosage: UNK
     Dates: start: 20111012
  17. FERROUS SULFATE TAB [Concomitant]
     Dosage: UNK
     Dates: start: 20111019
  18. HYDROXYZINE [Concomitant]
     Dosage: UNK
     Dates: start: 20110404
  19. NEORAL [Suspect]
     Indication: RENAL TRANSPLANT
     Dosage: 300 MG, QD
     Route: 048
     Dates: start: 20100326
  20. INSULIN [Concomitant]
     Dosage: UNK
     Dates: start: 20110803
  21. SPIRIVA [Concomitant]
     Dosage: UNK
     Dates: start: 20110804
  22. PREVACID [Concomitant]
     Dosage: UNK
     Dates: start: 20110804
  23. CARVEDILOL [Concomitant]
     Dosage: UNK
     Dates: start: 20110806
  24. AMMONIUM LACTATE [Concomitant]
     Dosage: UNK
     Dates: start: 20070223
  25. ESOMEPRAZOLE [Concomitant]
  26. FUROSEMIDE [Concomitant]
     Dosage: UNK
     Dates: start: 20111019
  27. ZOFRAN [Concomitant]
     Dosage: UNK
     Dates: start: 20110806
  28. FISH OIL [Concomitant]
     Dosage: UNK
     Dates: start: 20111019
  29. VITAMIN D [Concomitant]
     Dosage: UNK
     Dates: start: 20111019
  30. PREDNISONE TAB [Suspect]
     Dosage: UNK
     Route: 048
     Dates: start: 20100323
  31. OXYGEN [Concomitant]
     Dosage: UNK
     Dates: start: 20020101
  32. TRICOR [Concomitant]

REACTIONS (2)
  - CELLULITIS [None]
  - BLOOD CREATININE INCREASED [None]
